FAERS Safety Report 9248899 (Version 1)
Quarter: 2013Q1

REPORT INFORMATION
  Report Type: Spontaneous
  Country: US (occurrence: None)
  Receive Date: 20130305
  Receipt Date: 20130305
  Transmission Date: 20140127
  Serious: Yes (Other)
  Sender: FDA-Public Use
  Company Number: 163-21880-12053321

PATIENT
  Age: 69 Year
  Sex: Female
  Weight: 96.1 kg

DRUGS (10)
  1. REVLIMID [Suspect]
     Indication: PLASMA CELL MYELOMA
     Route: 048
     Dates: start: 20120523
  2. CARFILZOMIB (CARILZOMIB) [Concomitant]
  3. DECADRON (DEXAMETHASONE) [Concomitant]
  4. VALTREX (VALACICLOVIR HYDROCHLORIDE) [Concomitant]
  5. ASA (ACETYLSALICYLIC ACID) [Concomitant]
  6. ALLOPURINOL [Concomitant]
  7. LIPITOR (ATORVASTATIN) [Concomitant]
  8. LOSARTAN (LOSARTAN) [Concomitant]
  9. CLOBETASOL (CLOBETASOL) (CREAM) [Concomitant]
  10. ZOFRAN (ONDANSETRON HYDROCHLORIDE) [Concomitant]

REACTIONS (1)
  - Rash [None]
